FAERS Safety Report 4422975-7 (Version None)
Quarter: 2004Q3

REPORT INFORMATION
  Report Type: 
  Country: None (occurrence: None)
  Receive Date: 20040805
  Receipt Date: 20040721
  Transmission Date: 20050211
  Serious: Yes (Death)
  Sender: FDA-Public Use
  Company Number: 184774

PATIENT
  Age: 52 Year
  Sex: Female

DRUGS (10)
  1. AVONEX [Suspect]
     Indication: MULTIPLE SCLEROSIS
     Dosage: 30 MCG QW IM
     Route: 030
     Dates: end: 20020501
  2. NAPROXEN [Concomitant]
  3. NEURONTIN [Concomitant]
  4. SYNTHROID [Concomitant]
  5. ZESTRIL [Concomitant]
  6. SALAGEN [Concomitant]
  7. PROVIGIL [Concomitant]
  8. NORTRIPTYLINE HCL [Concomitant]
  9. MIDRIN [Concomitant]
  10. EVENING PRIMROSE OIL [Concomitant]

REACTIONS (1)
  - NEURODEGENERATIVE DISORDER [None]
